FAERS Safety Report 9898236 (Version 2)
Quarter: 2014Q1

REPORT INFORMATION
  Report Type: Spontaneous
  Country: US (occurrence: US)
  Receive Date: 20140214
  Receipt Date: 20140214
  Transmission Date: 20141002
  Serious: No
  Sender: FDA-Public Use
  Company Number: US-GILEAD-2011-0041719

PATIENT
  Age: 63 Year
  Sex: Female

DRUGS (3)
  1. LETAIRIS [Suspect]
     Indication: PULMONARY HYPERTENSION
     Route: 048
     Dates: start: 20110524, end: 20110706
  2. LETAIRIS [Suspect]
     Indication: SLEEP APNOEA SYNDROME
  3. ADCIRCA [Concomitant]

REACTIONS (2)
  - Swelling [Unknown]
  - Oedema peripheral [Unknown]
